FAERS Safety Report 13342292 (Version 1)
Quarter: 2017Q1

REPORT INFORMATION
  Report Type: Spontaneous
  Country: JP (occurrence: JP)
  Receive Date: 20170316
  Receipt Date: 20170316
  Transmission Date: 20170428
  Serious: Yes (Other)
  Sender: FDA-Public Use
  Company Number: JP-ASTRAZENECA-2017SE25933

PATIENT
  Age: 58 Year
  Sex: Male

DRUGS (2)
  1. IRESSA [Suspect]
     Active Substance: GEFITINIB
     Indication: NON-SMALL CELL LUNG CANCER
     Route: 048
     Dates: start: 201607, end: 2016
  2. IRESSA [Suspect]
     Active Substance: GEFITINIB
     Indication: NON-SMALL CELL LUNG CANCER
     Route: 048

REACTIONS (3)
  - Metastases to central nervous system [Recovering/Resolving]
  - Hepatic function abnormal [Unknown]
  - Metastases to meninges [Recovering/Resolving]

NARRATIVE: CASE EVENT DATE: 201607
